FAERS Safety Report 6371987-5 (Version None)
Quarter: 2009Q3

REPORT INFORMATION
  Report Type: 
  Country: None (occurrence: None)
  Receive Date: 20090917
  Receipt Date: 20090904
  Transmission Date: 20100115
  Serious: Yes (Hospitalization)
  Sender: FDA-Public Use
  Company Number: ADR19222009 (ARROW GENERICS LOG NO.: AG1765)

PATIENT
  Age: 61 Year
  Sex: Male

DRUGS (5)
  1. SALBUTAMOL (MFR: UNKNOWN) [Suspect]
     Dosage: 100 MCG
  2. MICARDIS [Concomitant]
  3. BECLOFORTE 250 MG [Concomitant]
  4. SALMETEROL 25 MCG [Concomitant]
  5. SIMVASTATIN [Concomitant]

REACTIONS (1)
  - ACUTE MYOCARDIAL INFARCTION [None]
